FAERS Safety Report 24419311 (Version 2)
Quarter: 2024Q4

REPORT INFORMATION
  Report Type: Report from Study
  Country: US (occurrence: US)
  Receive Date: 20241009
  Receipt Date: 20241018
  Transmission Date: 20250115
  Serious: No
  Sender: ROCHE
  Company Number: US-BoehringerIngelheim-2023-BI-276992

PATIENT
  Sex: Male

DRUGS (2)
  1. ALTEPLASE [Suspect]
     Active Substance: ALTEPLASE
     Indication: Frostbite
     Dosage: 0.15 MG/KG OVER 15 MIN FOLLOWED BY A CONTINUOUS INFUSION OF ALTEPLASE 0.15 MG/KG/HR FOR 6 H
     Route: 065
  2. HEPARIN [Concomitant]
     Active Substance: HEPARIN SODIUM

REACTIONS (1)
  - Haematochezia [Unknown]
